FAERS Safety Report 21458908 (Version 1)
Quarter: 2022Q4

REPORT INFORMATION
  Report Type: Spontaneous
  Country: US (occurrence: None)
  Receive Date: 20221013
  Receipt Date: 20221013
  Transmission Date: 20230113
  Serious: No
  Sender: FDA-Public Use
  Company Number: None

PATIENT
  Age: 65 Year
  Sex: Male
  Weight: 11.34 kg

DRUGS (15)
  1. ABIRATERONE [Suspect]
     Active Substance: ABIRATERONE
     Indication: Prostate cancer
     Dosage: FREQUENCY : DAILY;?
     Route: 048
     Dates: start: 20220914
  2. ALLOPURINOL [Concomitant]
     Active Substance: ALLOPURINOL
  3. HERBALS [Concomitant]
     Active Substance: HERBALS
  4. ELIGARD [Concomitant]
     Active Substance: LEUPROLIDE ACETATE
  5. Grapeseed extract [Concomitant]
  6. HYDROCHLOROTHIAZIDE [Concomitant]
     Active Substance: HYDROCHLOROTHIAZIDE
  7. VITAMINS [Concomitant]
     Active Substance: VITAMINS
  8. Zodran [Concomitant]
  9. OXYCODONE [Concomitant]
     Active Substance: OXYCODONE
  10. HERBALS\TURMERIC [Concomitant]
     Active Substance: HERBALS\TURMERIC
  11. SPIRONOLACTONE [Concomitant]
     Active Substance: SPIRONOLACTONE
  12. SUMATRIPTAN [Concomitant]
     Active Substance: SUMATRIPTAN
  13. VERAPAMIL HYDROCHLORIDE [Concomitant]
     Active Substance: VERAPAMIL HYDROCHLORIDE
  14. VITAMIN C [Concomitant]
     Active Substance: ASCORBIC ACID
  15. VITAMIN D3 [Concomitant]
     Active Substance: CHOLECALCIFEROL

REACTIONS (1)
  - Stent placement [None]

NARRATIVE: CASE EVENT DATE: 20221013
